FAERS Safety Report 4764105-8 (Version None)
Quarter: 2005Q3

REPORT INFORMATION
  Report Type: 
  Country: None (occurrence: None)
  Receive Date: 20050908
  Receipt Date: 20050830
  Transmission Date: 20060218
  Serious: Yes (Other)
  Sender: FDA-Public Use
  Company Number: US-MERCK-0509USA00136

PATIENT
  Sex: Male

DRUGS (4)
  1. VIOXX [Suspect]
     Route: 048
     Dates: start: 20000301, end: 20001028
  2. VIOXX [Suspect]
     Route: 048
     Dates: start: 20011019, end: 20011212
  3. VIOXX [Suspect]
     Route: 048
     Dates: start: 20020101, end: 20020701
  4. VIOXX [Suspect]
     Route: 048
     Dates: start: 20030801, end: 20031001

REACTIONS (1)
  - MYOCARDIAL INFARCTION [None]
